FAERS Safety Report 8126215-7 (Version None)
Quarter: 2012Q1

REPORT INFORMATION
  Report Type: 
  Country: None (occurrence: None)
  Receive Date: 20120209
  Receipt Date: 20120207
  Transmission Date: 20120608
  Serious: Yes (Death)
  Sender: FDA-Public Use
  Company Number: PHHY2012NL009293

PATIENT
  Sex: Female
  Weight: 80 kg

DRUGS (1)
  1. ALISKIREN [Suspect]

REACTIONS (1)
  - METASTATIC NEOPLASM [None]
